FAERS Safety Report 10101890 (Version 2)
Quarter: 2014Q2

REPORT INFORMATION
  Report Type: Spontaneous
  Country: US (occurrence: US)
  Receive Date: 20140424
  Receipt Date: 20140428
  Transmission Date: 20141212
  Serious: Yes (Hospitalization)
  Sender: FDA-Public Use
  Company Number: US-UCBSA-119021

PATIENT
  Age: 60 Year
  Sex: Male
  Weight: 107 kg

DRUGS (9)
  1. NEUPRO [Suspect]
     Indication: PARKINSON^S DISEASE
     Dosage: 4 MG
     Dates: start: 20140102
  2. AZILECT [Concomitant]
     Indication: PARKINSON^S DISEASE
     Dosage: 0.5 MG FOR 1 WEEK
     Dates: start: 201303
  3. AZILECT [Concomitant]
     Indication: PARKINSON^S DISEASE
     Dosage: 1 MG
  4. PRAMIPEXOLE [Concomitant]
     Indication: BARRETT^S OESOPHAGUS
  5. ASA [Concomitant]
  6. FISH OIL [Concomitant]
  7. MULTI-VITAMIN [Concomitant]
  8. DEXILANT [Concomitant]
  9. LIPITOR [Concomitant]
     Indication: HYPERLIPIDAEMIA

REACTIONS (1)
  - Anaphylactic reaction [Recovered/Resolved]
